FAERS Safety Report 24225871 (Version 1)
Quarter: 2024Q3

REPORT INFORMATION
  Report Type: Spontaneous
  Country: CN (occurrence: CN)
  Receive Date: 20240820
  Receipt Date: 20240820
  Transmission Date: 20241016
  Serious: Yes (Death)
  Sender: AMGEN
  Company Number: CN-AMGEN-CHNSP2024163346

PATIENT
  Age: 34 Year
  Sex: Female

DRUGS (8)
  1. FILGRASTIM [Suspect]
     Active Substance: FILGRASTIM
     Indication: Acute leukaemia
     Dosage: UNK
     Route: 065
  2. VINCRISTINE [Concomitant]
     Active Substance: VINCRISTINE
  3. IDARUBICIN [Concomitant]
     Active Substance: IDARUBICIN
  4. CYCLOPHOSPHAMIDE [Concomitant]
     Active Substance: CYCLOPHOSPHAMIDE
  5. PEGASPARGASE [Concomitant]
     Active Substance: PEGASPARGASE
  6. PREDNISONE [Concomitant]
     Active Substance: PREDNISONE
  7. CYTARABINE [Concomitant]
     Active Substance: CYTARABINE
  8. ACLARUBICIN [Concomitant]
     Active Substance: ACLARUBICIN

REACTIONS (1)
  - Death [Fatal]
